FAERS Safety Report 11222561 (Version 1)
Quarter: 2015Q2

REPORT INFORMATION
  Report Type: Spontaneous
  Country: US (occurrence: US)
  Receive Date: 20150626
  Receipt Date: 20150626
  Transmission Date: 20150821
  Serious: Yes (Death)
  Sender: FDA-Public Use
  Company Number: US-COREPHARMA LLC-2015COR00125

PATIENT
  Sex: Male

DRUGS (1)
  1. DEXTROAMPHETAMINE/AMPHETAMINE ` [Suspect]
     Active Substance: AMPHETAMINE\DEXTROAMPHETAMINE

REACTIONS (8)
  - Fall [Fatal]
  - Haematoma [Fatal]
  - Cerebral haemorrhage [Fatal]
  - Mental status changes [Fatal]
  - Head injury [None]
  - Hyperhidrosis [Unknown]
  - Hypertension [Unknown]
  - Brain death [Fatal]
